FAERS Safety Report 12300970 (Version 1)
Quarter: 2016Q2

REPORT INFORMATION
  Report Type: Spontaneous
  Country: US (occurrence: US)
  Receive Date: 20160425
  Receipt Date: 20160425
  Transmission Date: 20160815
  Serious: No
  Sender: FDA-Public Use
  Company Number: US-LUNDBECK-DKLU2011591

PATIENT
  Age: 81 Year
  Sex: Male

DRUGS (1)
  1. NORTHERA [Suspect]
     Active Substance: DROXIDOPA
     Indication: PRODUCT USED FOR UNKNOWN INDICATION
     Route: 065
     Dates: start: 20160309

REACTIONS (5)
  - Dizziness [Unknown]
  - Syncope [Unknown]
  - Catatonia [Unknown]
  - Blood pressure increased [Recovered/Resolved]
  - Staring [Unknown]

NARRATIVE: CASE EVENT DATE: 20160310
